FAERS Safety Report 6358705-1 (Version None)
Quarter: 2009Q3

REPORT INFORMATION
  Report Type: 
  Country: None (occurrence: None)
  Receive Date: 20090916
  Receipt Date: 20090629
  Transmission Date: 20100115
  Serious: No
  Sender: FDA-Public Use
  Company Number: US-ABBOTT-09P-163-0583168-00

PATIENT
  Sex: Male
  Weight: 61.29 kg

DRUGS (1)
  1. TRILIPIX [Suspect]
     Indication: HYPERLIPIDAEMIA
     Dates: start: 20090101, end: 20090629

REACTIONS (2)
  - CHOKING SENSATION [None]
  - INCORRECT DRUG ADMINISTRATION DURATION [None]
